FAERS Safety Report 9784751 (Version 1)
Quarter: 2013Q4

REPORT INFORMATION
  Report Type: Spontaneous
  Country: TW (occurrence: TW)
  Receive Date: 20131227
  Receipt Date: 20131227
  Transmission Date: 20140711
  Serious: Yes (Hospitalization)
  Sender: FDA-Public Use
  Company Number: TW-AMGEN-TWNSP2013090160

PATIENT
  Age: 83 Year
  Sex: Female

DRUGS (1)
  1. PROLIA [Suspect]
     Indication: PRODUCT USED FOR UNKNOWN INDICATION
     Dosage: 120
     Route: 030
     Dates: start: 20130702

REACTIONS (7)
  - Palpitations [Unknown]
  - Malignant hypertension [Unknown]
  - Abdominal distension [Unknown]
  - Hypertension [Unknown]
  - Hyponatraemia [Unknown]
  - Asthenia [Unknown]
  - Hypocalcaemia [Recovered/Resolved]
